FAERS Safety Report 18335379 (Version 1)
Quarter: 2020Q4

REPORT INFORMATION
  Report Type: Spontaneous
  Country: ES (occurrence: ES)
  Receive Date: 20201001
  Receipt Date: 20201001
  Transmission Date: 20210113
  Serious: Yes (Hospitalization)
  Sender: FDA-Public Use
  Company Number: ES-TEVA-2020-ES-1832331

PATIENT
  Age: 8 Year
  Sex: Male
  Weight: 25 kg

DRUGS (3)
  1. IBUPROFENO [Suspect]
     Active Substance: IBUPROFEN
     Indication: PAIN
     Dosage: 18.9 ML DAILY; || DOSE UNIT FREQUENCY: 18.9 ML-MILLILITERS || DOSE PER DOSE: 6.3 ML-MILLILITERS || N
     Route: 048
     Dates: start: 20170213, end: 20170219
  2. PARACETAMOL [Suspect]
     Active Substance: ACETAMINOPHEN
     Indication: PAIN
     Dosage: 11.4 ML DAILY; || DOSE UNIT FREQUENCY: 11.4 ML-MILLILITERS || DOSE PER DOSE: 3.8 ML-MILLILITERS || N
     Route: 048
     Dates: start: 20170213, end: 20170220
  3. AMOXICILINA + CLAVULANICO [Suspect]
     Active Substance: AMOXICILLIN\CLAVULANIC ACID
     Indication: TOOTH ABSCESS
     Dosage: 19.5 ML DAILY; || DOSE UNIT FREQUENCY: 19.5 ML-MILLILITERS || DOSE PER DOSE: 6.5 ML-MILLILITERS || N
     Route: 048
     Dates: start: 20170213, end: 20170215

REACTIONS (3)
  - Aphthous ulcer [Recovered/Resolved]
  - Drug eruption [Recovered/Resolved]
  - Angioedema [Recovered/Resolved]

NARRATIVE: CASE EVENT DATE: 20170213
